FAERS Safety Report 13677719 (Version 1)
Quarter: 2017Q2

REPORT INFORMATION
  Report Type: Spontaneous
  Country: None (occurrence: US)
  Receive Date: 20170621
  Receipt Date: 20170621
  Transmission Date: 20170830
  Serious: Yes (Other)
  Sender: FDA-Public Use
  Company Number: None

PATIENT
  Age: 37 Year
  Sex: Female

DRUGS (4)
  1. PROGESTERONE IN SESAME OIL 50MG/ML WATSON [Suspect]
     Active Substance: PROGESTERONE
     Indication: SUPPORTIVE CARE
     Dosage: 1ML (50MG) DAILY IN PM IM
     Route: 030
     Dates: end: 20170602
  2. PROGESTERONE IN SESAME OIL 50MG/ML WATSON [Suspect]
     Active Substance: PROGESTERONE
     Indication: PREGNANCY
     Dosage: 1ML (50MG) DAILY IN PM IM
     Route: 030
     Dates: end: 20170602
  3. PROGESTERONE IN ETHYL OLEATE 50MG/ML COMPOUNDED BY CVS SPECIALTY # 48031. INGREDIENTS MANUFACTURER. [Suspect]
     Active Substance: PROGESTERONE
     Indication: PREGNANCY
     Dosage: 2ML (100MG) DAILY IN PM IM
     Route: 030
     Dates: start: 20170603
  4. PROGESTERONE IN ETHYL OLEATE 50MG/ML COMPOUNDED BY CVS SPECIALTY # 48031. INGREDIENTS MANUFACTURER. [Suspect]
     Active Substance: PROGESTERONE
     Indication: SUPPORTIVE CARE
     Dosage: 2ML (100MG) DAILY IN PM IM
     Route: 030
     Dates: start: 20170603

REACTIONS (4)
  - Pneumonitis [None]
  - Cough [None]
  - Bronchitis [None]
  - Post procedural complication [None]

NARRATIVE: CASE EVENT DATE: 20170528
